FAERS Safety Report 13663208 (Version 1)
Quarter: 2017Q2

REPORT INFORMATION
  Report Type: Spontaneous
  Country: US (occurrence: US)
  Receive Date: 20170619
  Receipt Date: 20170619
  Transmission Date: 20170830
  Serious: Yes (Other)
  Sender: FDA-Public Use
  Company Number: US-AUROBINDO-AUR-APU-2017-35833

PATIENT
  Age: 37 Year
  Sex: Female
  Weight: 74.39 kg

DRUGS (3)
  1. SERTRALINE HCL [Suspect]
     Active Substance: SERTRALINE HYDROCHLORIDE
     Indication: ANXIETY
     Dosage: 50 MG, ONCE A DAY
     Route: 065
     Dates: start: 20170515, end: 20170526
  2. FIORICET [Concomitant]
     Active Substance: ACETAMINOPHEN\BUTALBITAL\CAFFEINE
     Indication: MIGRAINE
     Dosage: 50-325-40 TAKE AS NEEDED
     Route: 065
  3. XANAX [Concomitant]
     Active Substance: ALPRAZOLAM
     Indication: SOCIAL ANXIETY DISORDER
     Dosage: 1 MG, TWO TIMES A DAY
     Route: 065

REACTIONS (11)
  - Dizziness [Recovered/Resolved]
  - Urticaria [Recovering/Resolving]
  - Asthenia [Recovering/Resolving]
  - Nausea [Recovering/Resolving]
  - Diarrhoea [Recovering/Resolving]
  - Confusional state [Unknown]
  - Rash pruritic [Recovering/Resolving]
  - Vomiting [Recovering/Resolving]
  - Ocular hyperaemia [Not Recovered/Not Resolved]
  - Fatigue [Recovering/Resolving]
  - Abnormal dreams [Recovering/Resolving]

NARRATIVE: CASE EVENT DATE: 201705
